FAERS Safety Report 21179665 (Version 3)
Quarter: 2023Q1

REPORT INFORMATION
  Report Type: Spontaneous
  Country: SK (occurrence: SK)
  Receive Date: 20220805
  Receipt Date: 20230303
  Transmission Date: 20230418
  Serious: Yes (Hospitalization)
  Sender: FDA-Public Use
  Company Number: SK-ALLERGAN-2225564US

PATIENT
  Sex: Male
  Weight: 82 kg

DRUGS (11)
  1. SILODOSIN [Suspect]
     Active Substance: SILODOSIN
     Indication: Prostate cancer
     Dosage: 8 MG, QD
     Dates: end: 20220517
  2. SILODOSIN [Suspect]
     Active Substance: SILODOSIN
     Dosage: 8 MG, QD
     Dates: start: 20220322, end: 20220411
  3. ELIGARD [Concomitant]
     Active Substance: LEUPROLIDE ACETATE
     Indication: Prostate cancer
     Dosage: 45 MG
  4. ATORVASTATIN [Concomitant]
     Active Substance: ATORVASTATIN
     Dosage: UNK MG
  5. IBUPROFEN [Concomitant]
     Active Substance: IBUPROFEN
  6. SODIUM CHONDROITIN SULFATE [Concomitant]
     Active Substance: SODIUM CHONDROITIN SULFATE
  7. RAMIPRIL [Concomitant]
     Active Substance: RAMIPRIL
     Dosage: UNK MG
  8. MAGNESIUM OROTATE [Concomitant]
     Active Substance: MAGNESIUM OROTATE
     Dosage: UNK MG
  9. BICALUTAMIDE [Concomitant]
     Active Substance: BICALUTAMIDE
     Indication: Prostate cancer
     Dosage: UNK MG
  10. ZOLPIDEM TARTRATE [Concomitant]
     Active Substance: ZOLPIDEM TARTRATE
     Dosage: UNK MG
  11. CALTRATE WITH VITAMIN D [Concomitant]
     Active Substance: CALCIUM CARBONATE\CHOLECALCIFEROL
     Indication: Prostate cancer

REACTIONS (8)
  - Anaemia [Unknown]
  - Product use in unapproved indication [Unknown]
  - Myalgia [Unknown]
  - Somnolence [Unknown]
  - Dyspnoea [Unknown]
  - Malaise [Unknown]
  - Gait disturbance [Unknown]
  - Asthenia [Unknown]

NARRATIVE: CASE EVENT DATE: 20220526
